FAERS Safety Report 9013734 (Version 1)
Quarter: 2013Q1

REPORT INFORMATION
  Report Type: Spontaneous
  Country: FR (occurrence: FR)
  Receive Date: 20130115
  Receipt Date: 20130115
  Transmission Date: 20140127
  Serious: Yes (Other)
  Sender: FDA-Public Use
  Company Number: PHHY2012FR118716

PATIENT
  Age: 66 Year
  Sex: Female
  Weight: 43 kg

DRUGS (6)
  1. AFINITOR [Suspect]
     Indication: BREAST CANCER METASTATIC
     Dosage: 10 MG, QD
     Route: 048
     Dates: start: 20120806
  2. CARDENSIEL [Concomitant]
  3. AROMASINE [Concomitant]
  4. DUROGESIC [Concomitant]
  5. ZOMETA [Concomitant]
  6. PARACETAMOL [Concomitant]

REACTIONS (3)
  - Hepatocellular injury [Unknown]
  - Skin discolouration [Recovering/Resolving]
  - Nail discolouration [Recovering/Resolving]
